FAERS Safety Report 8813943 (Version 2)
Quarter: 2012Q4

REPORT INFORMATION
  Report Type: 
  Country: US (occurrence: US)
  Receive Date: 20120928
  Receipt Date: 20121026
  Transmission Date: 20130627
  Serious: Yes (Death, Hospitalization)
  Sender: FDA-Public Use
  Company Number: US-ROCHE-1129719

PATIENT
  Age: 62 Year
  Sex: Male

DRUGS (1)
  1. HERCEPTIN [Suspect]
     Indication: BREAST CANCER MALE
     Route: 065
     Dates: start: 20090723, end: 20110215

REACTIONS (6)
  - Breast cancer [Fatal]
  - Pneumonia [Fatal]
  - Hyperglycaemia [Unknown]
  - Atrial fibrillation [Unknown]
  - Hepatic failure [Unknown]
  - Thrombocytopenia [Unknown]
